FAERS Safety Report 9170688 (Version 1)
Quarter: 2013Q1

REPORT INFORMATION
  Report Type: Report from Study
  Country: AR (occurrence: AR)
  Receive Date: 20130319
  Receipt Date: 20130319
  Transmission Date: 20140127
  Serious: Yes (Hospitalization)
  Sender: FDA-Public Use
  Company Number: AR-JNJFOC-20111102748

PATIENT
  Age: 35 Year
  Sex: Female
  Weight: 104 kg

DRUGS (9)
  1. GOLIMUMAB [Suspect]
     Indication: RHEUMATOID ARTHRITIS
     Route: 042
     Dates: start: 20111018
  2. GOLIMUMAB [Suspect]
     Indication: RHEUMATOID ARTHRITIS
     Route: 042
     Dates: start: 20101013
  3. LEVOTHYROXINE [Concomitant]
     Indication: HYPOTHYROIDISM
     Route: 048
  4. FOLIC ACID [Concomitant]
     Indication: PROPHYLAXIS
     Route: 048
  5. NAPROXEN [Concomitant]
     Indication: RHEUMATOID ARTHRITIS
  6. PREDNISONE [Concomitant]
     Indication: RHEUMATOID ARTHRITIS
     Route: 048
  7. GLIOTENZIDE [Concomitant]
     Route: 048
     Dates: start: 20101109
  8. ADVANTAN [Concomitant]
     Route: 061
     Dates: start: 20110516
  9. ETHINYLESTRADIOL W/GESTODENE [Concomitant]
     Indication: ORAL CONTRACEPTION
     Dates: start: 20110923

REACTIONS (1)
  - Urosepsis [Recovered/Resolved]
